FAERS Safety Report 10073344 (Version 2)
Quarter: 2014Q2

REPORT INFORMATION
  Report Type: Spontaneous
  Country: US (occurrence: US)
  Receive Date: 20140411
  Receipt Date: 20140624
  Transmission Date: 20141212
  Serious: Yes (Hospitalization)
  Sender: FDA-Public Use
  Company Number: US-009507513-1404USA006176

PATIENT
  Age: 69 Year
  Sex: Female
  Weight: 92.52 kg

DRUGS (4)
  1. OXYTROL FOR WOMEN [Suspect]
     Indication: PRODUCT USED FOR UNKNOWN INDICATION
     Dosage: UNK, UNKNOWN
     Route: 062
  2. OXYTROL FOR WOMEN [Suspect]
     Dosage: UNK, Q4D
     Route: 062
     Dates: start: 201312
  3. METFORMIN [Concomitant]
     Indication: TYPE 2 DIABETES MELLITUS
     Dosage: UNK, UNKNOWN
     Route: 065
  4. SIMVASTIN [Concomitant]
     Indication: BLOOD CHOLESTEROL INCREASED
     Dosage: UNK, UNKNOWN
     Route: 065

REACTIONS (5)
  - Hospitalisation [Unknown]
  - Application site erythema [Unknown]
  - Application site bruise [Unknown]
  - Off label use [Unknown]
  - Product adhesion issue [Not Recovered/Not Resolved]
